FAERS Safety Report 24137441 (Version 1)
Quarter: 2024Q3

REPORT INFORMATION
  Report Type: Spontaneous
  Country: US (occurrence: None)
  Receive Date: 20240725
  Receipt Date: 20240725
  Transmission Date: 20241017
  Serious: Yes (Hospitalization)
  Sender: Public
  Company Number: None

PATIENT
  Sex: Female

DRUGS (3)
  1. TERIPARATIDE [Suspect]
     Active Substance: TERIPARATIDE
     Indication: Senile osteoporosis
  2. RINVOQ ER [Concomitant]
     Indication: Spinal osteoarthritis
  3. XOLAIR PFS [Concomitant]
     Active Substance: OMALIZUMAB
     Indication: Urticaria

REACTIONS (1)
  - Hospitalisation [None]
